FAERS Safety Report 18397197 (Version 1)
Quarter: 2020Q4

REPORT INFORMATION
  Report Type: Spontaneous
  Country: US (occurrence: US)
  Receive Date: 20201016
  Receipt Date: 20201016
  Transmission Date: 20210114
  Serious: Yes (Other)
  Sender: FDA-Public Use
  Company Number: None

PATIENT
  Age: 27 Year
  Sex: Female
  Weight: 69.75 kg

DRUGS (2)
  1. ALBUTEROL SULFATE PERRIGO [Suspect]
     Active Substance: ALBUTEROL SULFATE
     Indication: ASTHMA
     Route: 048
     Dates: start: 20200526
  2. FLOVENT SINGULAR [Concomitant]

REACTIONS (2)
  - Asthma [None]
  - Product quality issue [None]
